FAERS Safety Report 26204312 (Version 1)
Quarter: 2025Q4

REPORT INFORMATION
  Report Type: Spontaneous
  Country: TW (occurrence: TW)
  Receive Date: 20251226
  Receipt Date: 20251226
  Transmission Date: 20260118
  Serious: Yes (Life-Threatening, Other)
  Sender: FRESENIUS KABI
  Company Number: TW-FreseniusKabi-FK202517481

PATIENT
  Age: 68 Year
  Sex: Male
  Weight: 46.4 kg

DRUGS (8)
  1. CISPLATIN [Suspect]
     Active Substance: CISPLATIN
     Indication: Malignant palate neoplasm
     Dosage: DURING THE TREATMENT COURSE, HE RECEIVED MULTIPLE LINES OF CISPLATIN/CARBOPLATIN COMBINED WITH FLUOR
     Dates: start: 202310
  2. CISPLATIN [Suspect]
     Active Substance: CISPLATIN
     Dosage: FOA: INJECTION?DOSE: 35 MG/ST?DISCONTINUED AT 14:45
     Route: 042
     Dates: start: 20251215, end: 20251215
  3. TEGAFUR [Concomitant]
     Active Substance: TEGAFUR
     Indication: Malignant palate neoplasm
     Dates: start: 202310
  4. CETUXIMAB [Concomitant]
     Active Substance: CETUXIMAB
     Indication: Malignant palate neoplasm
     Dates: start: 2025
  5. CARBOPLATIN [Concomitant]
     Active Substance: CARBOPLATIN
     Indication: Malignant palate neoplasm
     Dosage: DURING THE TREATMENT COURSE, HE RECEIVED MULTIPLE LINES OF CISPLATIN/CARBOPLATIN COMBINED WITH FLUOR
     Dates: start: 202310
  6. FLUOROURACIL [Concomitant]
     Active Substance: FLUOROURACIL
     Indication: Malignant palate neoplasm
     Dosage: DURING THE TREATMENT COURSE, HE RECEIVED MULTIPLE LINES OF CISPLATIN/CARBOPLATIN COMBINED WITH FLUOR
     Dates: start: 202310
  7. FLUOROURACIL [Concomitant]
     Active Substance: FLUOROURACIL
     Dates: start: 20251215
  8. URACIL [Concomitant]
     Active Substance: URACIL
     Indication: Malignant palate neoplasm
     Dates: start: 202310

REACTIONS (4)
  - Loss of consciousness [Recovered/Resolved]
  - Asthenia [Recovered/Resolved]
  - Rash pruritic [Recovered/Resolved]
  - Flushing [Recovered/Resolved]

NARRATIVE: CASE EVENT DATE: 20251215
